FAERS Safety Report 14582808 (Version 1)
Quarter: 2018Q1

REPORT INFORMATION
  Report Type: Spontaneous
  Country: US (occurrence: US)
  Receive Date: 20180228
  Receipt Date: 20180228
  Transmission Date: 20180509
  Serious: No
  Sender: FDA-Public Use
  Company Number: US-BAUSCH-BL-2017-034362

PATIENT
  Age: 61 Year
  Sex: Female
  Weight: 80.81 kg

DRUGS (1)
  1. UCERIS [Suspect]
     Active Substance: BUDESONIDE
     Indication: COLITIS ULCERATIVE
     Route: 048

REACTIONS (3)
  - Malaise [Unknown]
  - Hypersensitivity [Unknown]
  - Endodontic procedure [Unknown]

NARRATIVE: CASE EVENT DATE: 2017
